FAERS Safety Report 11613853 (Version 2)
Quarter: 2015Q4

REPORT INFORMATION
  Report Type: Report from Study
  Country: US (occurrence: US)
  Receive Date: 20151008
  Receipt Date: 20151209
  Transmission Date: 20160304
  Serious: Yes (Hospitalization)
  Sender: FDA-Public Use
  Company Number: PHHO2015US014902

PATIENT
  Age: 81 Year
  Sex: Male
  Weight: 82.54 kg

DRUGS (11)
  1. SPIRONOLACTONE. [Suspect]
     Active Substance: SPIRONOLACTONE
     Indication: CARDIAC FAILURE CHRONIC
     Dosage: 25 MG, QD
     Route: 048
     Dates: start: 20150609
  2. FUROSEMIDE. [Suspect]
     Active Substance: FUROSEMIDE
     Indication: CARDIAC FAILURE CHRONIC
     Dosage: 20 MG, PRN
     Route: 048
     Dates: start: 20150427
  3. BLINDED NO TREATMENT RECEIVED [Suspect]
     Active Substance: INVESTIGATIONAL PRODUCT
     Indication: CARDIAC FAILURE CHRONIC
     Dosage: CODE NOT BROKEN
     Route: 048
     Dates: start: 20150115, end: 20150721
  4. BLINDED LCZ696 [Suspect]
     Active Substance: SACUBITRIL
     Indication: CARDIAC FAILURE CHRONIC
     Dosage: CODE NOT BROKEN
     Route: 048
     Dates: start: 20150115, end: 20150721
  5. BLINDED NO TREATMENT RECEIVED [Suspect]
     Active Substance: INVESTIGATIONAL PRODUCT
     Dosage: CODE NOT BROKEN
     Route: 048
     Dates: start: 20150730
  6. BLINDED LCZ696 [Suspect]
     Active Substance: SACUBITRIL
     Dosage: CODE NOT BROKEN
     Route: 048
     Dates: start: 20150730
  7. DITROPAN [Suspect]
     Active Substance: OXYBUTYNIN CHLORIDE
     Indication: PROSTATE CANCER
     Dosage: 10 MG, QD
     Route: 048
     Dates: start: 2010
  8. DIOVAN [Suspect]
     Active Substance: VALSARTAN
     Indication: CARDIAC FAILURE CHRONIC
     Dosage: CODE NOT BROKEN
     Route: 048
     Dates: start: 20150115, end: 20150721
  9. METOPROLOL [Suspect]
     Active Substance: METOPROLOL
     Indication: CARDIAC FAILURE CHRONIC
     Dosage: 25 MG, BID
     Route: 048
     Dates: start: 2010, end: 20150721
  10. TAMSULOSIN [Suspect]
     Active Substance: TAMSULOSIN
     Indication: PROSTATE CANCER
     Dosage: 0.4 MG, QD
     Route: 048
     Dates: start: 2010, end: 20150722
  11. DIOVAN [Suspect]
     Active Substance: VALSARTAN
     Dosage: CODE NOT BROKEN
     Route: 048
     Dates: start: 20150730

REACTIONS (1)
  - Syncope [Recovered/Resolved]

NARRATIVE: CASE EVENT DATE: 20150719
